FAERS Safety Report 25079441 (Version 1)
Quarter: 2025Q1

REPORT INFORMATION
  Report Type: Spontaneous
  Country: RU (occurrence: RU)
  Receive Date: 20250314
  Receipt Date: 20250314
  Transmission Date: 20250409
  Serious: Yes (Death, Hospitalization, Other)
  Sender: ALEXION PHARMACEUTICALS
  Company Number: RU-ASTRAZENECA-202503RUS010268RU

PATIENT
  Age: 56 Year

DRUGS (1)
  1. CAPIVASERTIB [Suspect]
     Active Substance: CAPIVASERTIB
     Indication: Breast cancer metastatic
     Dosage: 400 MILLIGRAM, BID
     Route: 065

REACTIONS (2)
  - Condition aggravated [Fatal]
  - Death [Fatal]
